FAERS Safety Report 23633241 (Version 1)
Quarter: 2024Q1

REPORT INFORMATION
  Report Type: Spontaneous
  Country: US (occurrence: None)
  Receive Date: 20240314
  Receipt Date: 20240314
  Transmission Date: 20240410
  Serious: No
  Sender: FDA-Public Use
  Company Number: None

PATIENT
  Age: 73 Year
  Sex: Female

DRUGS (2)
  1. VARITHENA [Suspect]
     Active Substance: POLIDOCANOL
     Indication: Endovenous ablation
     Dates: start: 20240222
  2. DEVICE [Suspect]
     Active Substance: DEVICE

REACTIONS (6)
  - Pain [None]
  - Burning sensation [None]
  - Erythema [None]
  - Peripheral swelling [None]
  - Skin ulcer [None]
  - Surgical failure [None]

NARRATIVE: CASE EVENT DATE: 20240222
